FAERS Safety Report 11353126 (Version 1)
Quarter: 2015Q3

REPORT INFORMATION
  Report Type: Spontaneous
  Country: US (occurrence: US)
  Receive Date: 20150807
  Receipt Date: 20150807
  Transmission Date: 20151125
  Serious: No
  Sender: FDA-Public Use
  Company Number: US-JNJFOC-20141204146

PATIENT
  Age: 64 Year
  Sex: Female
  Weight: 49.9 kg

DRUGS (25)
  1. ALL OTHER THERAPEUTIC PRODUCTS [Concomitant]
     Active Substance: UNSPECIFIED INGREDIENT
     Indication: HAIR DISORDER
     Route: 065
  2. PYCNOGENOL [Concomitant]
     Active Substance: DIETARY SUPPLEMENT
     Indication: ANGIOPATHY
     Dosage: 2.5 YEARS
     Route: 065
  3. ALL OTHER THERAPEUTIC PRODUCTS [Concomitant]
     Active Substance: UNSPECIFIED INGREDIENT
     Indication: NAIL DISORDER
     Route: 065
  4. ALL OTHER THERAPEUTIC DRUGS [Concomitant]
     Active Substance: UNSPECIFIED INGREDIENT
     Indication: MENTAL IMPAIRMENT
     Dosage: 3 SPRAYS
     Route: 065
  5. MENS ROGAINE EXTRA STRENGTH [Suspect]
     Active Substance: MINOXIDIL
     Route: 061
  6. BIOTIN [Concomitant]
     Active Substance: BIOTIN
     Indication: NAIL DISORDER
     Route: 065
  7. VITAMIN K2 [Concomitant]
     Active Substance: MENAQUINONE 6
     Indication: BONE DISORDER
     Route: 065
  8. POTASSIUM [Concomitant]
     Active Substance: POTASSIUM
     Indication: MUSCLE DISORDER
     Dosage: 1.5 YEARS
     Route: 065
  9. ALL OTHER THERAPEUTIC PRODUCTS [Concomitant]
     Active Substance: UNSPECIFIED INGREDIENT
     Indication: BONE DISORDER
     Route: 065
  10. GLUCOSAMINE + CHONDROITIN COMBO [Concomitant]
     Indication: ARTHROPATHY
     Route: 065
  11. ALL OTHER THERAPEUTIC DRUGS [Concomitant]
     Active Substance: UNSPECIFIED INGREDIENT
     Indication: GASTRIC DISORDER
     Route: 065
  12. ALL OTHER THERAPEUTIC PRODUCTS [Concomitant]
     Active Substance: UNSPECIFIED INGREDIENT
     Indication: SKIN DISORDER
     Route: 065
  13. ASPIRIN. [Concomitant]
     Active Substance: ASPIRIN
     Indication: ARTERIAL BYPASS OPERATION
     Dosage: 3.5 TO 4 YEARS
     Route: 065
  14. DHEA [Concomitant]
     Active Substance: PRASTERONE
     Indication: METABOLIC DISORDER
     Dosage: 2 TO 3 YEARS
     Route: 065
  15. OMEGA-3 ACIDS [Concomitant]
     Active Substance: OMEGA-3 FATTY ACIDS
     Indication: ARTHROPATHY
     Route: 065
  16. MAGNESIUM [Concomitant]
     Active Substance: MAGNESIUM
     Indication: ARTHROPATHY
     Route: 065
  17. L-GLUTAMINE [Concomitant]
     Indication: GASTRIC DISORDER
     Dosage: 5-7 YEARS
     Route: 065
  18. ZINC [Concomitant]
     Active Substance: ZINC\ZINC CHLORIDE
     Indication: HAIR DISORDER
     Route: 065
  19. VITAMIN D [Concomitant]
     Active Substance: CHOLECALCIFEROL
     Indication: ROUTINE HEALTH MAINTENANCE
     Route: 065
  20. ARMOUR THYROID [Concomitant]
     Active Substance: THYROID, PORCINE\THYROID, UNSPECIFIED
     Indication: THYROID DISORDER
     Dosage: YEARS
     Route: 065
  21. FOLATE [Concomitant]
     Active Substance: FOLATE SODIUM
     Indication: MENTAL IMPAIRMENT
     Dosage: 2.5-3 YEARS
     Route: 065
  22. MENS ROGAINE EXTRA STRENGTH [Suspect]
     Active Substance: MINOXIDIL
     Indication: ALOPECIA
     Dosage: 1-2 ML ON AND OFF SINCE THE LATE 1990^S-EARLY 2000^S
     Route: 061
  23. FOLATE [Concomitant]
     Active Substance: FOLATE SODIUM
     Indication: BONE DISORDER
     Dosage: 2.5-3 YEARS
     Route: 065
  24. ALL OTHER THERAPEUTIC PRODUCTS [Concomitant]
     Active Substance: UNSPECIFIED INGREDIENT
     Indication: COLLAGEN DISORDER
     Route: 065
  25. HORMONE REPLACEMENT THERAPY [Concomitant]
     Active Substance: UNSPECIFIED INGREDIENT
     Indication: HORMONE REPLACEMENT THERAPY
     Route: 065

REACTIONS (5)
  - Wrong patient received medication [Unknown]
  - Incorrect dose administered [Unknown]
  - Drug prescribing error [Unknown]
  - Pruritus [Unknown]
  - Wrong technique in product usage process [Unknown]
